FAERS Safety Report 23545081 (Version 3)
Quarter: 2025Q2

REPORT INFORMATION
  Report Type: Spontaneous
  Country: US (occurrence: US)
  Receive Date: 20240220
  Receipt Date: 20250513
  Transmission Date: 20250717
  Serious: No
  Sender: PFIZER
  Company Number: US-PFIZER INC-202400043246

PATIENT
  Age: 51 Year
  Sex: Female

DRUGS (12)
  1. XELJANZ XR [Suspect]
     Active Substance: TOFACITINIB CITRATE
     Dosage: 11 MG, DAILY
     Dates: start: 20220413
  2. ALENDRONATE [Concomitant]
     Active Substance: ALENDRONATE SODIUM
  3. BENZONATATE [Concomitant]
     Active Substance: BENZONATATE
  4. DULOXETINE [Concomitant]
     Active Substance: DULOXETINE
  5. FOLIC ACID [Concomitant]
     Active Substance: FOLIC ACID
  6. HYDROMORPHONE [Concomitant]
     Active Substance: HYDROMORPHONE
  7. LEFLUNOMIDE [Concomitant]
     Active Substance: LEFLUNOMIDE
  8. LORAZEPAM [Concomitant]
     Active Substance: LORAZEPAM
  9. MORPHINE [Concomitant]
     Active Substance: MORPHINE
  10. PREDNISONE [Concomitant]
     Active Substance: PREDNISONE
  11. PROPRANOLOL [Concomitant]
     Active Substance: PROPRANOLOL HYDROCHLORIDE
  12. RIZATRIPTAN [Concomitant]
     Active Substance: RIZATRIPTAN

REACTIONS (2)
  - Condition aggravated [Not Recovered/Not Resolved]
  - Drug ineffective [Not Recovered/Not Resolved]

NARRATIVE: CASE EVENT DATE: 20240201
